FAERS Safety Report 7543738-X (Version None)
Quarter: 2011Q2

REPORT INFORMATION
  Report Type: 
  Country: None (occurrence: None)
  Receive Date: 20110613
  Receipt Date: 20040806
  Transmission Date: 20111010
  Serious: Yes (Death, Hospitalization)
  Sender: FDA-Public Use
  Company Number: PHHO2004CO04634

PATIENT
  Sex: Male

DRUGS (1)
  1. ZOLEDRONIC ACID [Suspect]
     Indication: METASTASES TO BONE
     Dosage: 4 MG, UNK
     Route: 042
     Dates: start: 20030201, end: 20040501

REACTIONS (6)
  - LIVER DISORDER [None]
  - MOBILITY DECREASED [None]
  - URINE FLOW DECREASED [None]
  - DEATH [None]
  - JAUNDICE [None]
  - PAIN [None]
